FAERS Safety Report 18147692 (Version 1)
Quarter: 2020Q3

REPORT INFORMATION
  Report Type: Spontaneous
  Country: KR (occurrence: KR)
  Receive Date: 20200814
  Receipt Date: 20200814
  Transmission Date: 20201103
  Serious: Yes (Hospitalization, Other)
  Sender: FDA-Public Use
  Company Number: KR-SCIEGEN-2020SCILIT00184

PATIENT
  Age: 32 Year
  Sex: Female

DRUGS (3)
  1. VALPROIC ACID. [Suspect]
     Active Substance: VALPROIC ACID
     Indication: PARTIAL SEIZURES
     Dosage: 30 MG/KG BOLUS, ON THE FIRST DAY OF HOSPITALIZATION
     Route: 040
  2. VALPROIC ACID. [Suspect]
     Active Substance: VALPROIC ACID
     Dosage: REDUCED TO 600 MG/DAY ON THE SECOND DAY OF HOSPITALIZATION
     Route: 048
  3. LAMOTRIGINE TABLETS [Suspect]
     Active Substance: LAMOTRIGINE
     Indication: TEMPORAL LOBE EPILEPSY
     Route: 048

REACTIONS (6)
  - Vertigo [Unknown]
  - Ataxia [Recovered/Resolved]
  - Nystagmus [Recovering/Resolving]
  - Toxicity to various agents [Unknown]
  - Dizziness [Recovering/Resolving]
  - Vision blurred [Unknown]
